FAERS Safety Report 4608759-5 (Version None)
Quarter: 2005Q1

REPORT INFORMATION
  Report Type: 
  Country: None (occurrence: None)
  Receive Date: 20050315
  Receipt Date: 20050303
  Transmission Date: 20050727
  Serious: Yes (Hospitalization)
  Sender: FDA-Public Use
  Company Number: IT-BRISTOL-MYERS SQUIBB COMPANY-12883658

PATIENT
  Age: 69 Year
  Sex: Male

DRUGS (1)
  1. IRBESARTAN [Suspect]
     Indication: ESSENTIAL HYPERTENSION

REACTIONS (2)
  - AUTOIMMUNE HEPATITIS [None]
  - CHOLESTASIS [None]
